FAERS Safety Report 12396198 (Version 1)
Quarter: 2016Q2

REPORT INFORMATION
  Report Type: Spontaneous
  Country: US (occurrence: US)
  Receive Date: 20160524
  Receipt Date: 20160524
  Transmission Date: 20160815
  Serious: No
  Sender: FDA-Public Use
  Company Number: US-009507513-1605USA003226

PATIENT

DRUGS (2)
  1. EMEND [Suspect]
     Active Substance: APREPITANT
  2. KEYTRUDA [Suspect]
     Active Substance: PEMBROLIZUMAB

REACTIONS (3)
  - Product packaging confusion [Unknown]
  - Product label confusion [Unknown]
  - No adverse event [Unknown]
